FAERS Safety Report 14262238 (Version 1)
Quarter: 2017Q4

REPORT INFORMATION
  Report Type: Report from Study
  Country: US (occurrence: US)
  Receive Date: 20171208
  Receipt Date: 20171208
  Transmission Date: 20180321
  Serious: No
  Sender: FDA-Public Use
  Company Number: US-KYOWAKIRIN-2017BKK000754

PATIENT

DRUGS (2)
  1. GRANISETRON [Suspect]
     Active Substance: GRANISETRON
     Dosage: 1 UNK, AS INSTRUCTED
     Route: 062
     Dates: start: 20170309
  2. GRANISETRON [Suspect]
     Active Substance: GRANISETRON
     Indication: PRODUCT USED FOR UNKNOWN INDICATION
     Dosage: 1 DF, UNK
     Route: 062

REACTIONS (2)
  - Product adhesion issue [Not Recovered/Not Resolved]
  - Wrong technique in product usage process [Not Recovered/Not Resolved]
